FAERS Safety Report 7712866-8 (Version None)
Quarter: 2011Q3

REPORT INFORMATION
  Report Type: 
  Country: None (occurrence: None)
  Receive Date: 20110826
  Receipt Date: 20110818
  Transmission Date: 20111222
  Serious: Yes (Hospitalization)
  Sender: FDA-Public Use
  Company Number: PHEH2011US01647

PATIENT
  Age: 52 Year
  Sex: Female
  Weight: 63.492 kg

DRUGS (1)
  1. TOBI [Suspect]
     Dosage: 300 MG, BID (28 DAYS ON AND 28 DAYS OFF)
     Dates: start: 20101228

REACTIONS (3)
  - UPPER RESPIRATORY TRACT INFECTION [None]
  - BRONCHIECTASIS [None]
  - CONDITION AGGRAVATED [None]
